FAERS Safety Report 9633064 (Version 3)
Quarter: 2013Q4

REPORT INFORMATION
  Report Type: Spontaneous
  Country: US (occurrence: US)
  Receive Date: 20131018
  Receipt Date: 20131105
  Transmission Date: 20140711
  Serious: Yes (Hospitalization, Other)
  Sender: FDA-Public Use
  Company Number: US-RB-059598-13

PATIENT
  Age: 38 Year
  Sex: Female

DRUGS (4)
  1. SUBOXONE FILM [Suspect]
     Indication: DRUG DEPENDENCE
     Dosage: SUBOXONE FILM
     Route: 060
     Dates: start: 2011, end: 20130829
  2. CLONAZEPAM [Concomitant]
     Indication: ANXIETY
     Route: 048
  3. SYNTHROID [Concomitant]
     Indication: THYROID DISORDER
     Dosage: DOSING DETAILS UNKNOWN
     Route: 048
  4. HYDROCHLOROTHIAZIDE [Concomitant]
     Indication: THYROID DISORDER
     Dosage: DOSING DETAILS UNKNOWN
     Route: 048

REACTIONS (9)
  - Fall [Recovered/Resolved]
  - Ankle fracture [Recovered/Resolved]
  - Arthralgia [Recovered/Resolved]
  - Facial bones fracture [Recovering/Resolving]
  - Jaw fracture [Recovering/Resolving]
  - Skull fractured base [Recovering/Resolving]
  - Tooth fracture [Recovered/Resolved]
  - Pain [Recovering/Resolving]
  - Feeling abnormal [Recovered/Resolved]
